FAERS Safety Report 14933109 (Version 1)
Quarter: 2018Q2

REPORT INFORMATION
  Report Type: Spontaneous
  Country: US (occurrence: US)
  Receive Date: 20180524
  Receipt Date: 20180524
  Transmission Date: 20180711
  Serious: No
  Sender: FDA-Public Use
  Company Number: US-PFIZER INC-2018213230

PATIENT
  Age: 16 Year
  Sex: Female

DRUGS (1)
  1. GENOTROPIN [Suspect]
     Active Substance: SOMATROPIN
     Indication: BLOOD GROWTH HORMONE
     Dosage: UNK (TWICE A DAY ON THE SUBSEQUENT DAYS)

REACTIONS (3)
  - Intentional product misuse [Unknown]
  - Insulin-like growth factor increased [Unknown]
  - Drug dose omission [Unknown]
